APPROVED DRUG PRODUCT: LEVONORGESTREL
Active Ingredient: LEVONORGESTREL
Strength: 1.5MG
Dosage Form/Route: TABLET;ORAL
Application: A202246 | Product #001
Applicant: ALVOGEN INC
Approved: Jun 5, 2015 | RLD: No | RS: No | Type: DISCN